FAERS Safety Report 4606847-0 (Version None)
Quarter: 2005Q1

REPORT INFORMATION
  Report Type: 
  Country: None (occurrence: None)
  Receive Date: 20050310
  Receipt Date: 20050117
  Transmission Date: 20050727
  Serious: Yes (Other)
  Sender: FDA-Public Use
  Company Number: TRP_0055_2005

PATIENT
  Age: 43 Year
  Sex: Female

DRUGS (8)
  1. RIBASPHERE [Suspect]
     Indication: HEPATITIS C
     Dosage: 1200 MG QDAY SC
     Route: 058
     Dates: start: 20041208, end: 20041229
  2. INTERFERON GAMMA-1B/ INTERMUNE [Suspect]
     Indication: HEPATITIS C
     Dosage: 100 MCG 3XWK SC
     Route: 058
     Dates: start: 20041208, end: 20041229
  3. INFERGEN [Suspect]
     Indication: HEPATITIS C
     Dosage: 15 MCG QDAY SC
     Route: 058
     Dates: start: 20041208, end: 20041229
  4. CALCIUM GLUCONATE [Concomitant]
  5. VITAMIN E [Concomitant]
  6. HYDROXYZINE [Concomitant]
  7. LORAZEPAM [Concomitant]
  8. TEMAZEPAM [Concomitant]

REACTIONS (6)
  - ABDOMINAL PAIN [None]
  - BACK PAIN [None]
  - INFLUENZA LIKE ILLNESS [None]
  - MYALGIA [None]
  - NEUTROPENIA [None]
  - PARAESTHESIA [None]
